FAERS Safety Report 6399855-3 (Version None)
Quarter: 2009Q4

REPORT INFORMATION
  Report Type: 
  Country: None (occurrence: None)
  Receive Date: 20091014
  Receipt Date: 20091005
  Transmission Date: 20100525
  Serious: Yes (Disabling, Other)
  Sender: FDA-Public Use
  Company Number: US-PFIZER INC-2009279121

PATIENT
  Sex: Female
  Weight: 71 kg

DRUGS (5)
  1. PROVERA [Suspect]
     Indication: HORMONE REPLACEMENT THERAPY
     Route: 048
  2. PREMARIN [Suspect]
     Indication: HORMONE REPLACEMENT THERAPY
     Dosage: 0.625 MG, UNK
     Dates: start: 19991101, end: 20000201
  3. PREMPRO [Suspect]
     Indication: HORMONE REPLACEMENT THERAPY
     Dosage: 0.625/2.5 MG
     Dates: start: 19960101, end: 20010301
  4. DILACOR XR [Concomitant]
     Indication: HYPERTENSION
     Dosage: 240 MG, 1X/DAY
     Dates: start: 19960101, end: 20030101
  5. DILTIA XT [Concomitant]
     Indication: HYPERTENSION
     Dosage: 240 MG, UNK
     Dates: start: 19960101, end: 20030101

REACTIONS (1)
  - BREAST CANCER [None]
